FAERS Safety Report 6738386-5 (Version None)
Quarter: 2010Q2

REPORT INFORMATION
  Report Type: 
  Country: None (occurrence: None)
  Receive Date: 20100524
  Receipt Date: 20100512
  Transmission Date: 20101027
  Serious: Yes (Hospitalization)
  Sender: FDA-Public Use
  Company Number: US-ELI_LILLY_AND_COMPANY-US201004003263

PATIENT
  Age: 54 Year
  Sex: Male
  Weight: 94.785 kg

DRUGS (8)
  1. BYETTA [Suspect]
     Indication: TYPE 2 DIABETES MELLITUS
     Dosage: 5 UG, 2/D
     Route: 058
     Dates: start: 20061103, end: 20061221
  2. BYETTA [Suspect]
     Dosage: 10 UG, 2/D
     Route: 058
     Dates: start: 20061221, end: 20100401
  3. METFORMIN [Concomitant]
     Dosage: UNK, 2/D
     Route: 048
  4. LANTUS [Concomitant]
  5. GLIMEPIRIDE [Concomitant]
     Dosage: 4 MG, 2/D
     Route: 048
  6. CRESTOR [Concomitant]
     Dosage: 20 MG, DAILY (1/D)
  7. TRICOR [Concomitant]
     Dosage: UNK, DAILY (1/D)
  8. LISINOPRIL [Concomitant]
     Dosage: 20 MG, DAILY (1/D)

REACTIONS (4)
  - HYPERLIPIDAEMIA [None]
  - OFF LABEL USE [None]
  - PANCREATITIS [None]
  - WEIGHT DECREASED [None]
